FAERS Safety Report 16887315 (Version 2)
Quarter: 2019Q4

REPORT INFORMATION
  Report Type: Report from Study
  Country: CA (occurrence: CA)
  Receive Date: 20191004
  Receipt Date: 20191014
  Transmission Date: 20200122
  Serious: Yes (Other)
  Sender: FDA-Public Use
  Company Number: CA-JNJFOC-20190935370

PATIENT
  Age: 18 Year
  Sex: Female
  Weight: 73.5 kg

DRUGS (6)
  1. REMICADE [Suspect]
     Active Substance: INFLIXIMAB
     Route: 042
     Dates: start: 20181015
  2. METHOTREXATE. [Concomitant]
     Active Substance: METHOTREXATE
     Route: 048
  3. ACIDE FOLIQUE [Concomitant]
     Active Substance: FOLIC ACID
     Route: 048
  4. LANSOPRAZOLE. [Concomitant]
     Active Substance: LANSOPRAZOLE
     Route: 048
  5. ACIDE FOLIQUE [Concomitant]
     Active Substance: FOLIC ACID
     Route: 048
  6. REMICADE [Suspect]
     Active Substance: INFLIXIMAB
     Indication: JUVENILE IDIOPATHIC ARTHRITIS
     Route: 042
     Dates: start: 20181015

REACTIONS (6)
  - Nasal congestion [Unknown]
  - Off label use [Unknown]
  - Arthralgia [Unknown]
  - Tonsillitis [Recovering/Resolving]
  - Product use in unapproved indication [Unknown]
  - Infectious mononucleosis [Not Recovered/Not Resolved]

NARRATIVE: CASE EVENT DATE: 20181015
